FAERS Safety Report 23601356 (Version 3)
Quarter: 2025Q1

REPORT INFORMATION
  Report Type: Report from Study
  Country: ES (occurrence: ES)
  Receive Date: 20240306
  Receipt Date: 20250327
  Transmission Date: 20250408
  Serious: Yes (Other)
  Sender: SK LIFE SCIENCE
  Company Number: ES-ACRAF SpA-2024-033414

PATIENT

DRUGS (18)
  1. XCOPRI [Suspect]
     Active Substance: CENOBAMATE
     Indication: Epilepsy
     Route: 065
     Dates: start: 20231130, end: 20231213
  2. XCOPRI [Suspect]
     Active Substance: CENOBAMATE
     Route: 065
     Dates: start: 20231214, end: 20231227
  3. XCOPRI [Suspect]
     Active Substance: CENOBAMATE
     Route: 065
     Dates: start: 20231228, end: 20240115
  4. XCOPRI [Suspect]
     Active Substance: CENOBAMATE
     Dosage: 100 MILLIGRAM, IN 1 DAY
     Route: 065
     Dates: start: 20240116, end: 20240228
  5. XCOPRI [Suspect]
     Active Substance: CENOBAMATE
     Dosage: 150 MILLIGRAM, IN 1 DAY
     Route: 065
     Dates: start: 20240229, end: 20240605
  6. XCOPRI [Suspect]
     Active Substance: CENOBAMATE
     Dosage: 200 MILLIGRAM, IN 1 DAY
     Route: 065
     Dates: start: 20240606, end: 20240912
  7. XCOPRI [Suspect]
     Active Substance: CENOBAMATE
     Route: 065
     Dates: start: 20240913
  8. VIMPAT [Concomitant]
     Active Substance: LACOSAMIDE
     Indication: Epilepsy
     Route: 065
     Dates: start: 20130202, end: 20240130
  9. VIMPAT [Concomitant]
     Active Substance: LACOSAMIDE
     Route: 065
     Dates: start: 20240130, end: 20240228
  10. VIMPAT [Concomitant]
     Active Substance: LACOSAMIDE
     Route: 065
     Dates: start: 20240229, end: 20240307
  11. VIMPAT [Concomitant]
     Active Substance: LACOSAMIDE
     Route: 065
     Dates: start: 20240308, end: 20240605
  12. VIMPAT [Concomitant]
     Active Substance: LACOSAMIDE
     Route: 065
     Dates: start: 20240606
  13. VIMPAT [Concomitant]
     Active Substance: LACOSAMIDE
     Route: 065
     Dates: start: 20240606
  14. KEPPRA [Concomitant]
     Active Substance: LEVETIRACETAM
     Indication: Epilepsy
     Route: 065
     Dates: start: 20140113, end: 20240912
  15. KEPPRA [Concomitant]
     Active Substance: LEVETIRACETAM
     Route: 065
     Dates: start: 20240913
  16. CITALOPRAM [Concomitant]
     Active Substance: CITALOPRAM
     Indication: Depression
     Route: 065
     Dates: start: 20150202, end: 20240606
  17. CITALOPRAM [Concomitant]
     Active Substance: CITALOPRAM
     Route: 065
     Dates: start: 20240606, end: 20241203
  18. CITALOPRAM [Concomitant]
     Active Substance: CITALOPRAM
     Route: 065
     Dates: start: 20241204, end: 202501

REACTIONS (3)
  - Thrombocytopenia [Unknown]
  - Somnolence [Not Recovered/Not Resolved]
  - Rash [Recovered/Resolved]

NARRATIVE: CASE EVENT DATE: 20240117
